FAERS Safety Report 8747457 (Version 2)
Quarter: 2012Q4

REPORT INFORMATION
  Report Type: 
  Country: JP (occurrence: JP)
  Receive Date: 20120827
  Receipt Date: 20120906
  Transmission Date: 20130627
  Serious: Yes (Hospitalization, Other)
  Sender: FDA-Public Use
  Company Number: JP-PFIZER INC-2012203833

PATIENT
  Age: 55 Year
  Sex: Female

DRUGS (1)
  1. CHAMPIX [Suspect]
     Indication: SMOKING CESSATION THERAPY
     Dosage: 2 mg daily
     Route: 048
     Dates: start: 201208, end: 201208

REACTIONS (4)
  - Loss of consciousness [Recovered/Resolved]
  - Road traffic accident [Recovered/Resolved]
  - Sleep disorder [Unknown]
  - Overwork [Unknown]
